FAERS Safety Report 5650555-4 (Version None)
Quarter: 2008Q1

REPORT INFORMATION
  Report Type: 
  Country: None (occurrence: None)
  Receive Date: 20080305
  Receipt Date: 20080226
  Transmission Date: 20080703
  Serious: Yes (Other)
  Sender: FDA-Public Use
  Company Number: US-ROCHE-540007

PATIENT
  Age: 43 Year
  Sex: Female

DRUGS (2)
  1. PEG-INTERFERON A-2A (RO 25-8310) [Suspect]
     Dosage: THE PATIENT WAS TAKING PEGASYS PREFILLED SYRINGE 180 MCG / 0.5 ML WEEKLY.
     Route: 065
     Dates: start: 20070910
  2. RIBAVIRIN [Suspect]
     Dosage: THE PATIENT WAS TAKING COPEGUS
     Route: 065
     Dates: start: 20070910

REACTIONS (3)
  - APPENDICITIS [None]
  - BLOOD PRESSURE DECREASED [None]
  - MYOCARDIAL ISCHAEMIA [None]
